FAERS Safety Report 9633908 (Version 1)
Quarter: 2013Q4

REPORT INFORMATION
  Report Type: Spontaneous
  Country: US (occurrence: None)
  Receive Date: 20131017
  Receipt Date: 20131017
  Transmission Date: 20140711
  Serious: Yes (Hospitalization)
  Sender: FDA-Public Use
  Company Number: 2013AP008905

PATIENT
  Age: 53 Year
  Sex: Female

DRUGS (2)
  1. RILUZOLE [Suspect]
     Indication: MAJOR DEPRESSION
     Route: 048
  2. SERTRALINE [Concomitant]

REACTIONS (4)
  - Amnesia [None]
  - Nausea [None]
  - Vomiting [None]
  - Rhabdomyolysis [None]
